FAERS Safety Report 25663412 (Version 1)
Quarter: 2025Q3

REPORT INFORMATION
  Report Type: Spontaneous
  Country: JP (occurrence: JP)
  Receive Date: 20250811
  Receipt Date: 20250811
  Transmission Date: 20251020
  Serious: Yes (Hospitalization)
  Sender: ROCHE
  Company Number: JP-CHUGAI-2024045399

PATIENT
  Age: 72 Year
  Sex: Male
  Weight: 90 kg

DRUGS (17)
  1. VABYSMO [Suspect]
     Active Substance: FARICIMAB-SVOA
     Indication: Diabetic retinal oedema
     Dosage: 6 MILLIGRAM, ONCE/4WEEKS,LEFT EYE
     Route: 031
     Dates: start: 20231030, end: 2024
  2. VABYSMO [Suspect]
     Active Substance: FARICIMAB-SVOA
     Dosage: 6 MILLIGRAM, ONCE/4WEEKS, RIGHT EYE?120 MG/ML
     Route: 031
     Dates: start: 20231019, end: 20240905
  3. BROMFENAC SODIUM [Concomitant]
     Active Substance: BROMFENAC SODIUM
     Route: 047
     Dates: start: 20221129, end: 20250213
  4. LEVOFLOXACIN HEMIHYDRATE [Concomitant]
     Active Substance: LEVOFLOXACIN
     Route: 047
     Dates: start: 202212
  5. BETAMETHASONE\NEOMYCIN [Concomitant]
     Active Substance: BETAMETHASONE\NEOMYCIN
     Route: 047
     Dates: start: 20230928
  6. COSOPT [Concomitant]
     Active Substance: DORZOLAMIDE HYDROCHLORIDE\TIMOLOL MALEATE
     Route: 047
     Dates: start: 20221216
  7. ALPHAGAN P [Concomitant]
     Active Substance: BRIMONIDINE TARTRATE
     Route: 047
     Dates: start: 20230324, end: 20250122
  8. ENALAPRIL MALEATE [Concomitant]
     Active Substance: ENALAPRIL MALEATE
     Dosage: 5 MG, ONCE DAILY, AFTER BREAKFAST
     Route: 048
  9. ATORVASTATIN CALCIUM TRIHYDRATE [Concomitant]
     Active Substance: ATORVASTATIN CALCIUM TRIHYDRATE
     Dosage: 10 MG, ONCE DAILY, AFTER BREAKFAST
     Route: 048
  10. FAMOTIDINE [Concomitant]
     Active Substance: FAMOTIDINE
     Dosage: 10 MG, ONCE DAILY, AFTER BREAKFAST
     Route: 048
  11. KETOTIFEN [KETOTIFEN FUMARATE] [Concomitant]
     Dosage: 1 MG, TWICE DAILY, AFTER BREAKFAST AND DINNER
     Route: 048
  12. ICOSAPENT ETHYL [Concomitant]
     Active Substance: ICOSAPENT ETHYL
     Dosage: 900 MG, TWICE DAILY, AFTER BREAKFAST AND DINNER
     Route: 048
  13. EMPAGLIFLOZIN\LINAGLIPTIN [Concomitant]
     Active Substance: EMPAGLIFLOZIN\LINAGLIPTIN
     Dosage: ONE DOSAGE FORM, ONCE DAILY, AFTER BREAKFAST
     Route: 048
  14. BENIDIPINE HYDROCHLORIDE [Concomitant]
     Active Substance: BENIDIPINE HYDROCHLORIDE
     Dosage: 4 MG, TWICE DAILY, AFTER BREAKFAST AND DINNER
     Route: 048
  15. ALPRAZOLAM [Concomitant]
     Active Substance: ALPRAZOLAM
     Dosage: 0.4 MG, ONCE DAILY, BEFORE BEDTIME
     Route: 048
  16. NOVORAPID [Concomitant]
     Active Substance: INSULIN ASPART
     Dosage: 30 IU, TWICE DAILY, IN THE MORNING AND EVENING
     Route: 048
  17. LANTUS SOLOSTAR [Concomitant]
     Active Substance: INSULIN GLARGINE
     Dosage: 30 IU, ONCE DAILY, BEFORE BEDTIME
     Route: 048

REACTIONS (3)
  - Keratitis [Recovering/Resolving]
  - Iritis [Recovering/Resolving]
  - Glaucoma [Recovering/Resolving]

NARRATIVE: CASE EVENT DATE: 20240906
